FAERS Safety Report 20662443 (Version 1)
Quarter: 2022Q2

REPORT INFORMATION
  Report Type: Spontaneous
  Country: US (occurrence: US)
  Receive Date: 20220401
  Receipt Date: 20220401
  Transmission Date: 20220721
  Serious: Yes (Death, Life-Threatening, Hospitalization, Other)
  Sender: FDA-Public Use
  Company Number: US-GLENMARK PHARMACEUTICALS-2022GMK071495

PATIENT

DRUGS (3)
  1. HYDROCORTISONE BUTYRATE [Suspect]
     Active Substance: HYDROCORTISONE BUTYRATE
     Indication: Product used for unknown indication
     Dosage: UNK
     Route: 042
  2. PREDNISONE [Suspect]
     Active Substance: PREDNISONE
     Indication: Product used for unknown indication
     Dosage: 40 MILLIGRAM, OD
     Route: 048
  3. METHYLPREDNISOLONE [Suspect]
     Active Substance: METHYLPREDNISOLONE
     Indication: Rheumatic disorder
     Dosage: 60 MILLIGRAM, OD
     Route: 042

REACTIONS (8)
  - Urinary tract infection [Fatal]
  - Multiple organ dysfunction syndrome [Fatal]
  - Strongyloidiasis [Fatal]
  - Escherichia sepsis [Fatal]
  - Gastrointestinal haemorrhage [Fatal]
  - Hypotension [Fatal]
  - Respiratory failure [Fatal]
  - Clostridium difficile colitis [Unknown]
